FAERS Safety Report 8060990-5 (Version None)
Quarter: 2012Q1

REPORT INFORMATION
  Report Type: 
  Country: None (occurrence: None)
  Receive Date: 20120120
  Receipt Date: 20120117
  Transmission Date: 20120608
  Serious: Yes (Hospitalization)
  Sender: FDA-Public Use
  Company Number: GB-MERCK-1201BRA00065

PATIENT

DRUGS (1)
  1. MAXALT [Suspect]
     Route: 065

REACTIONS (1)
  - THERAPY CESSATION [None]
